FAERS Safety Report 10203435 (Version 2)
Quarter: 2014Q2

REPORT INFORMATION
  Report Type: Spontaneous
  Country: GB (occurrence: None)
  Receive Date: 20140523
  Receipt Date: 20140620
  Transmission Date: 20141212
  Serious: Yes (Hospitalization)
  Sender: FDA-Public Use
  Company Number: 2350681

PATIENT
  Age: 35 Year
  Sex: Female
  Weight: 80 kg

DRUGS (7)
  1. PROPOFOL [Suspect]
     Indication: GENERAL ANAESTHESIA
     Dosage: 100 MG MILLIGRAM(S), INTRAVENOUS DRIP
     Route: 041
     Dates: start: 19970819, end: 19970819
  2. ALFENTANIL HYDROCHLORIDE [Suspect]
     Indication: GENERAL ANAESTHESIA
     Dosage: UNKNOWN
     Dates: start: 19970819, end: 19970819
  3. MIDAZOLAM [Suspect]
     Indication: SEDATION
     Dosage: 30 MG WAS GIVEN IN 8 BOLUS DOSES OVER ABOUT 6 HOURS
     Route: 040
     Dates: start: 19970819, end: 19970819
  4. MIDAZOLAM [Suspect]
     Indication: ANALGESIC THERAPY
     Dosage: 30 MG WAS GIVEN IN 8 BOLUS DOSES OVER ABOUT 6 HOURS
     Route: 040
     Dates: start: 19970819, end: 19970819
  5. FENTANYL CITRATE [Suspect]
     Indication: ANALGESIC THERAPY
     Dosage: 0.1 MG/ML, UNKNOWN, INTRAVENOUS (NOT OTHERWISE SPECIFIED)
     Route: 042
     Dates: start: 19970819, end: 19970819
  6. ACICLOVIR [Concomitant]
  7. ITRACONAZOLE [Concomitant]

REACTIONS (1)
  - Hepatitis acute [None]
